FAERS Safety Report 10083790 (Version 1)
Quarter: 2014Q2

REPORT INFORMATION
  Report Type: Report from Study
  Country: BR (occurrence: BR)
  Receive Date: 20140417
  Receipt Date: 20140417
  Transmission Date: 20141212
  Serious: Yes (Other)
  Sender: FDA-Public Use
  Company Number: PHHY2014BR045831

PATIENT
  Age: 84 Year
  Sex: Male
  Weight: 54 kg

DRUGS (9)
  1. EXELON [Suspect]
     Indication: DEMENTIA ALZHEIMER^S TYPE
     Dosage: 3 MG, DAILY
     Dates: start: 201312
  2. RENAGEL [Concomitant]
     Dosage: 3 DF, DAILY
  3. B COMPLEX [Concomitant]
     Dosage: 2 DF, DAILY
  4. FOLIC ACID [Concomitant]
     Dosage: 1 DF, DAILY
  5. AAS [Concomitant]
     Indication: ANTICOAGULANT THERAPY
     Dosage: 1 DF, DAILY
     Dates: start: 201311
  6. PANTOPRAZOLE [Concomitant]
     Indication: PROPHYLAXIS
     Dosage: 1 DF, DAILY
  7. CILOSTAZOL [Concomitant]
     Indication: MEMORY IMPAIRMENT
     Dosage: 1 DF, DAILY
     Dates: start: 201311
  8. HEMAX [Concomitant]
     Indication: HAEMODIALYSIS
     Dosage: 3 DF, WEEKLY (AMPOULES)
  9. NORIPURUM [Concomitant]
     Indication: HAEMODIALYSIS
     Dosage: 1 DF, WEEKLY

REACTIONS (6)
  - Cerebrovascular accident [Recovering/Resolving]
  - Hemiplegia [Recovering/Resolving]
  - Aphasia [Recovering/Resolving]
  - Infarction [Recovering/Resolving]
  - Dementia [Recovering/Resolving]
  - Hypotension [Recovering/Resolving]
